FAERS Safety Report 23873372 (Version 1)
Quarter: 2024Q2

REPORT INFORMATION
  Report Type: Spontaneous
  Country: US (occurrence: None)
  Receive Date: 20240517
  Receipt Date: 20240517
  Transmission Date: 20240716
  Serious: No
  Sender: FDA-Public Use
  Company Number: None

PATIENT
  Sex: 0

DRUGS (1)
  1. HALDOL [Suspect]
     Active Substance: HALOPERIDOL

REACTIONS (3)
  - Hallucination [None]
  - Decreased interest [None]
  - Disturbance in attention [None]
